FAERS Safety Report 11050255 (Version 2)
Quarter: 2015Q2

REPORT INFORMATION
  Report Type: Spontaneous
  Country: US (occurrence: US)
  Receive Date: 20150421
  Receipt Date: 20150423
  Transmission Date: 20150821
  Serious: No
  Sender: FDA-Public Use
  Company Number: US-HORIZON-VIM-0043-2015

PATIENT
  Age: 84 Year
  Sex: Female

DRUGS (7)
  1. TRAZODONE [Concomitant]
     Active Substance: TRAZODONE HYDROCHLORIDE
  2. PRAVASTATIN [Concomitant]
     Active Substance: PRAVASTATIN\PRAVASTATIN SODIUM
  3. VIMOVO [Suspect]
     Active Substance: ESOMEPRAZOLE MAGNESIUM\NAPROXEN
     Indication: ARTHRALGIA
     Dosage: TABLET TAKEN TWICE DAILY, THEN TAKEN ONCE DAILY
  4. VITAMINS [Concomitant]
     Active Substance: VITAMINS
  5. BENICAR [Concomitant]
     Active Substance: OLMESARTAN MEDOXOMIL
  6. TOPROL XL [Concomitant]
     Active Substance: METOPROLOL SUCCINATE
  7. CLONAZEPAM. [Concomitant]
     Active Substance: CLONAZEPAM

REACTIONS (1)
  - Drug ineffective [Not Recovered/Not Resolved]
